FAERS Safety Report 5427410-8 (Version None)
Quarter: 2007Q3

REPORT INFORMATION
  Report Type: 
  Country: None (occurrence: None)
  Receive Date: 20070828
  Receipt Date: 20070821
  Transmission Date: 20080115
  Serious: Yes (Other)
  Sender: FDA-Public Use
  Company Number: US-ASTRAZENECA-2007UW20053

PATIENT
  Age: 76 Year
  Sex: Female
  Weight: 59 kg

DRUGS (4)
  1. ARIMIDEX [Suspect]
     Indication: BREAST CANCER STAGE I
     Route: 048
     Dates: start: 20060101
  2. TAMOXIFEN CITRATE [Suspect]
     Indication: BREAST CANCER STAGE I
     Route: 048
     Dates: start: 20050101, end: 20060101
  3. INDERAL [Concomitant]
  4. FOSOMAX [Concomitant]

REACTIONS (1)
  - BASAL CELL CARCINOMA [None]
